FAERS Safety Report 12560485 (Version 1)
Quarter: 2016Q3

REPORT INFORMATION
  Report Type: Spontaneous
  Country: US (occurrence: None)
  Receive Date: 20160714
  Receipt Date: 20160714
  Transmission Date: 20161109
  Serious: Yes (Other)
  Sender: FDA-Public Use
  Company Number: None

PATIENT
  Age: 38 Year
  Sex: Female
  Weight: 66.23 kg

DRUGS (5)
  1. XANAX [Concomitant]
     Active Substance: ALPRAZOLAM
  2. ZECUITY [Suspect]
     Active Substance: SUMATRIPTAN SUCCINATE
     Indication: MIGRAINE
     Dosage: 1 PATCH(ES) ONCE A DAY APPLIED AS MEDICATED PATCH TO SKIN
     Dates: start: 20151106, end: 20160115
  3. TOPAMAX [Concomitant]
     Active Substance: TOPIRAMATE
  4. FIORICET [Concomitant]
     Active Substance: ACETAMINOPHEN\BUTALBITAL\CAFFEINE
  5. INDOMETHACIN. [Concomitant]
     Active Substance: INDOMETHACIN

REACTIONS (6)
  - Device malfunction [None]
  - Application site pain [None]
  - Application site pruritus [None]
  - Application site urticaria [None]
  - Application site scar [None]
  - Skin irritation [None]

NARRATIVE: CASE EVENT DATE: 20151106
